FAERS Safety Report 16857501 (Version 1)
Quarter: 2019Q3

REPORT INFORMATION
  Report Type: Spontaneous
  Country: FR (occurrence: FR)
  Receive Date: 20190926
  Receipt Date: 20190926
  Transmission Date: 20191005
  Serious: Yes (Other)
  Sender: FDA-Public Use
  Company Number: FR-ASTELLAS-2019US037892

PATIENT
  Age: 93 Year
  Sex: Male

DRUGS (2)
  1. XTANDI [Suspect]
     Active Substance: ENZALUTAMIDE
     Indication: PROSTATE CANCER
     Dosage: 160 MG (4DF), ONCE DAILY
     Route: 065
     Dates: start: 201904
  2. XTANDI [Suspect]
     Active Substance: ENZALUTAMIDE
     Route: 065

REACTIONS (3)
  - Asthenia [Recovered/Resolved]
  - Cardiac failure [Recovered/Resolved]
  - Confusional state [Recovered/Resolved]

NARRATIVE: CASE EVENT DATE: 2019
